FAERS Safety Report 18717363 (Version 1)
Quarter: 2021Q1

REPORT INFORMATION
  Report Type: Spontaneous
  Country: US (occurrence: US)
  Receive Date: 20210107
  Receipt Date: 20210107
  Transmission Date: 20210419
  Serious: Yes (Other)
  Sender: FDA-Public Use
  Company Number: None

PATIENT
  Age: 60 Year
  Sex: Male
  Weight: 90.72 kg

DRUGS (10)
  1. METOPROLOL. [Concomitant]
     Active Substance: METOPROLOL
  2. LANTUS [Concomitant]
     Active Substance: INSULIN GLARGINE
  3. VITAMIN D [Concomitant]
     Active Substance: VITAMIN D NOS
  4. MAVYRET [Suspect]
     Active Substance: GLECAPREVIR\PIBRENTASVIR
     Indication: HEPATITIS C
     Dosage: ?          QUANTITY:3 DF DOSAGE FORM;OTHER ROUTE:BY MOUTH WITH FOOD?
     Route: 048
     Dates: start: 201803, end: 201805
  5. LISINOPRIL. [Concomitant]
     Active Substance: LISINOPRIL
  6. JANUVIA [Concomitant]
     Active Substance: SITAGLIPTIN PHOSPHATE
  7. AMILODIPINE [Concomitant]
  8. BLACK SEED OIL [Concomitant]
  9. TUMERIC [Concomitant]
     Active Substance: HERBALS\TURMERIC
  10. PREDNISONE. [Concomitant]
     Active Substance: PREDNISONE

REACTIONS (6)
  - Laboratory test abnormal [None]
  - Muscle injury [None]
  - Muscle fatigue [None]
  - Weight decreased [None]
  - Asthenia [None]
  - General physical health deterioration [None]

NARRATIVE: CASE EVENT DATE: 20180301
